FAERS Safety Report 24094734 (Version 1)
Quarter: 2024Q3

REPORT INFORMATION
  Report Type: Spontaneous
  Country: BR (occurrence: BR)
  Receive Date: 20240716
  Receipt Date: 20240716
  Transmission Date: 20241017
  Serious: Yes (Disabling)
  Sender: CELLTRION
  Company Number: BR-CELLTRION INC.-2024BR015180

PATIENT

DRUGS (4)
  1. INFLIXIMAB [Suspect]
     Active Substance: INFLIXIMAB
     Indication: Crohn^s disease
     Dosage: 3 AMPOULES EVERY 60 DAYS
     Route: 042
     Dates: start: 20220928
  2. INFLIXIMAB [Suspect]
     Active Substance: INFLIXIMAB
     Dosage: 3 AMPOULES EVERY 60 DAYS
     Route: 042
     Dates: start: 20240619
  3. MESALAMINE [Concomitant]
     Active Substance: MESALAMINE
     Indication: Crohn^s disease
     Dosage: 3 PILLS A DAY; START DATE: 15 YEARS AGO
     Route: 048
  4. DIENOGEST [Concomitant]
     Active Substance: DIENOGEST
     Indication: Endometriosis
     Dosage: 1 PILL A DAY; START DATE: 20 YEARS AGO
     Route: 048

REACTIONS (7)
  - Impaired work ability [Unknown]
  - Herpes zoster [Recovering/Resolving]
  - Hypertension [Recovering/Resolving]
  - Hypersensitivity [Unknown]
  - Swelling [Unknown]
  - Intentional dose omission [Recovering/Resolving]
  - Intentional product use issue [Unknown]

NARRATIVE: CASE EVENT DATE: 20240520
